FAERS Safety Report 9292776 (Version 2)
Quarter: 2013Q2

REPORT INFORMATION
  Report Type: Report from Study
  Country: RU (occurrence: RU)
  Receive Date: 20130516
  Receipt Date: 20130605
  Transmission Date: 20140414
  Serious: Yes (Death)
  Sender: FDA-Public Use
  Company Number: PHHY2013RU048756

PATIENT
  Age: 69 Year
  Sex: Male

DRUGS (4)
  1. ACLASTA [Suspect]
     Indication: OFF LABEL USE
     Dosage: UNK
     Route: 042
  2. ACLASTA [Suspect]
     Dosage: UNK
     Route: 042
  3. ACLASTA [Suspect]
     Dosage: UNK
     Route: 042
  4. INTERFERON [Concomitant]
     Dosage: UNK

REACTIONS (1)
  - Metastases to bone [Fatal]
